FAERS Safety Report 5471039-2 (Version None)
Quarter: 2007Q3

REPORT INFORMATION
  Report Type: 
  Country: None (occurrence: None)
  Receive Date: 20070928
  Receipt Date: 20070917
  Transmission Date: 20080115
  Serious: Yes (Hospitalization)
  Sender: FDA-Public Use
  Company Number: B0488905A

PATIENT
  Age: 80 Year
  Sex: Female

DRUGS (9)
  1. AUGMENTIN '125' [Suspect]
     Route: 048
  2. PREVISCAN [Suspect]
     Indication: ATRIAL FIBRILLATION
     Dosage: 35MG PER DAY
     Route: 048
     Dates: start: 20050701
  3. ZOLOFT [Suspect]
     Route: 048
  4. CARDENSIEL [Concomitant]
     Route: 048
  5. LASIX [Concomitant]
     Route: 048
  6. THERALENE [Concomitant]
     Route: 048
  7. OMEPRAZOLE [Concomitant]
     Route: 048
  8. SERESTA [Concomitant]
     Route: 048
  9. DIFFU K [Concomitant]
     Route: 048

REACTIONS (5)
  - ANAEMIA [None]
  - GASTROINTESTINAL HAEMORRHAGE [None]
  - MELAENA [None]
  - PROTHROMBIN LEVEL DECREASED [None]
  - RECTAL HAEMORRHAGE [None]
